FAERS Safety Report 21045407 (Version 2)
Quarter: 2022Q3

REPORT INFORMATION
  Report Type: Spontaneous
  Country: JP (occurrence: JP)
  Receive Date: 20220706
  Receipt Date: 20220805
  Transmission Date: 20221026
  Serious: Yes (Other)
  Sender: FDA-Public Use
  Company Number: JP-BEH-2022147141

PATIENT
  Age: 48 Year
  Sex: Male

DRUGS (6)
  1. HUMAN IMMUNOGLOBULIN G [Suspect]
     Active Substance: HUMAN IMMUNOGLOBULIN G
     Indication: Thrombosis with thrombocytopenia syndrome
     Dosage: 1G/KG/DAY FOR 2 DAYS
     Route: 042
  2. HEPARIN [Concomitant]
     Active Substance: HEPARIN SODIUM
     Route: 065
  3. DEXAMETHASONE [Concomitant]
     Active Substance: DEXAMETHASONE
     Indication: Thrombosis with thrombocytopenia syndrome
     Dosage: 39.6 MILLIGRAM, QD
     Route: 065
  4. DANAPAROID [Concomitant]
     Active Substance: DANAPAROID
     Dosage: 2500 INTERNATIONAL UNIT, QD
     Route: 065
  5. FRESH FROZEN PLASMA [Concomitant]
     Active Substance: HUMAN PLASMA
     Dosage: 4 UNITS
     Route: 065
  6. ARGATROBAN [Concomitant]
     Active Substance: ARGATROBAN
     Dosage: 0.7Y

REACTIONS (5)
  - Pulmonary embolism [Unknown]
  - Oxygen saturation abnormal [Unknown]
  - N-terminal prohormone brain natriuretic peptide increased [Unknown]
  - No adverse event [Unknown]
  - Off label use [Unknown]
